FAERS Safety Report 10497908 (Version 2)
Quarter: 2014Q4

REPORT INFORMATION
  Report Type: Report from Study
  Country: BR (occurrence: BR)
  Receive Date: 20141006
  Receipt Date: 20141006
  Transmission Date: 20150528
  Serious: Yes (Hospitalization, Other)
  Sender: FDA-Public Use
  Company Number: PHHY2013BR109795

PATIENT
  Age: 62 Year
  Sex: Male
  Weight: 48 kg

DRUGS (2)
  1. SANDOSTATIN LAR DEPOT [Suspect]
     Active Substance: OCTREOTIDE ACETATE
     Dosage: 30 MG, QMO
     Route: 065
     Dates: start: 201212, end: 201408
  2. SANDOSTATIN LAR DEPOT [Suspect]
     Active Substance: OCTREOTIDE ACETATE
     Indication: NEUROENDOCRINE TUMOUR
     Dosage: 30 MG, EVERY 28 DAYS
     Route: 030
     Dates: start: 20111208

REACTIONS (10)
  - Renal mass [Unknown]
  - Chest pain [Not Recovered/Not Resolved]
  - Weight decreased [Unknown]
  - Gait disturbance [Unknown]
  - Metastases to liver [Recovered/Resolved]
  - Decreased appetite [Unknown]
  - Hepatic pain [Recovered/Resolved]
  - Pain in extremity [Recovered/Resolved]
  - Pulmonary mass [Unknown]
  - Pain [Recovering/Resolving]

NARRATIVE: CASE EVENT DATE: 201304
